FAERS Safety Report 23100236 (Version 1)
Quarter: 2023Q4

REPORT INFORMATION
  Report Type: Spontaneous
  Country: US (occurrence: None)
  Receive Date: 20231020
  Receipt Date: 20231020
  Transmission Date: 20240109
  Serious: Yes (Hospitalization)
  Sender: FDA-Public Use
  Company Number: None

PATIENT
  Age: 72 Year
  Sex: Male
  Weight: 57 kg

DRUGS (1)
  1. HYDROXYUREA [Suspect]
     Active Substance: HYDROXYUREA
     Dosage: FREQUENCY : TWICE A DAY;?
     Route: 048
     Dates: start: 20220508, end: 20220916

REACTIONS (5)
  - Hyperkalaemia [None]
  - Myalgia [None]
  - Abdominal distension [None]
  - Nausea [None]
  - Electrocardiogram T wave amplitude increased [None]

NARRATIVE: CASE EVENT DATE: 20220916
